FAERS Safety Report 21329842 (Version 4)
Quarter: 2024Q1

REPORT INFORMATION
  Report Type: Spontaneous
  Country: US (occurrence: US)
  Receive Date: 20220913
  Receipt Date: 20240125
  Transmission Date: 20240409
  Serious: No
  Sender: FDA-Public Use
  Company Number: US-SA-SAC20220908000388

PATIENT
  Age: 25 Year
  Sex: Female

DRUGS (1)
  1. DUPIXENT [Suspect]
     Active Substance: DUPILUMAB
     Indication: Asthma
     Dosage: 300 MG, QOW
     Route: 058
     Dates: start: 20200409

REACTIONS (6)
  - Discomfort [Unknown]
  - Eczema [Unknown]
  - Impetigo [Unknown]
  - Infection [Unknown]
  - Scratch [Unknown]
  - Rash [Unknown]

NARRATIVE: CASE EVENT DATE: 20220801
